FAERS Safety Report 14843588 (Version 1)
Quarter: 2018Q2

REPORT INFORMATION
  Report Type: Report from Study
  Country: US (occurrence: US)
  Receive Date: 20180503
  Receipt Date: 20180503
  Transmission Date: 20180711
  Serious: Yes (Other)
  Sender: FDA-Public Use
  Company Number: US-BAYER-2017-238031

PATIENT
  Age: 63 Year
  Sex: Female

DRUGS (18)
  1. BETASERON [Suspect]
     Active Substance: INTERFERON BETA-1B
     Indication: RELAPSING-REMITTING MULTIPLE SCLEROSIS
     Dosage: 8 MIU, QOD
     Route: 058
     Dates: start: 20160312
  2. DULCOLAX (BISACODYL) [Concomitant]
     Active Substance: BISACODYL
  3. VITAMIN D3 [Concomitant]
     Active Substance: CHOLECALCIFEROL
  4. CELEBREX [Concomitant]
     Active Substance: CELECOXIB
  5. VITAMIN D [Concomitant]
     Active Substance: CHOLECALCIFEROL
  6. CRANBERRY. [Concomitant]
     Active Substance: CRANBERRY
  7. DEXILANT [Concomitant]
     Active Substance: DEXLANSOPRAZOLE
  8. CALCIUM [Concomitant]
     Active Substance: CALCIUM
  9. MECLIZINE [Concomitant]
     Active Substance: MECLIZINE HYDROCHLORIDE
  10. VITAMIN B12 [Concomitant]
     Active Substance: CYANOCOBALAMIN
  11. CEPHALEXIN. [Concomitant]
     Active Substance: CEPHALEXIN
  12. BETASERON [Suspect]
     Active Substance: INTERFERON BETA-1B
     Indication: RELAPSING-REMITTING MULTIPLE SCLEROSIS
     Dosage: 0.3 MG, QOD
     Dates: start: 1993
  13. PERCOCET [Concomitant]
     Active Substance: ACETAMINOPHEN\OXYCODONE HYDROCHLORIDE
  14. BIOTIN [Concomitant]
     Active Substance: BIOTIN
  15. BACLOFEN. [Concomitant]
     Active Substance: BACLOFEN
  16. VESICARE [Concomitant]
     Active Substance: SOLIFENACIN SUCCINATE
  17. DIAZEPAM. [Concomitant]
     Active Substance: DIAZEPAM
  18. CELECOXIB. [Concomitant]
     Active Substance: CELECOXIB

REACTIONS (5)
  - Injection site swelling [Not Recovered/Not Resolved]
  - Cellulitis [None]
  - Injection site erythema [Not Recovered/Not Resolved]
  - Injection site bruising [Not Recovered/Not Resolved]
  - Injection site pain [Not Recovered/Not Resolved]

NARRATIVE: CASE EVENT DATE: 20171203
